FAERS Safety Report 7111984-5 (Version None)
Quarter: 2010Q4

REPORT INFORMATION
  Report Type: 
  Country: None (occurrence: None)
  Receive Date: 20101119
  Receipt Date: 20101110
  Transmission Date: 20110411
  Serious: Yes (Hospitalization)
  Sender: FDA-Public Use
  Company Number: FR-TEVA-255119ISR

PATIENT
  Sex: Female

DRUGS (14)
  1. AZILECT [Suspect]
     Indication: PARKINSON'S DISEASE
     Route: 048
     Dates: end: 20101001
  2. COD LIVEROIL [Suspect]
     Route: 048
     Dates: start: 20100913
  3. SULPHUR OLIGOSOL [Suspect]
     Route: 048
     Dates: start: 20100913
  4. SELENIUM OLIGOSOL [Suspect]
     Route: 048
     Dates: start: 20100913
  5. MANGANESE COPPER OLIGOSOL [Suspect]
     Route: 048
     Dates: start: 20100913
  6. LITHIUM CARBONATE [Suspect]
     Route: 048
     Dates: start: 20100913
  7. RIBES NINGRUM ESSENCE [Suspect]
     Route: 048
     Dates: start: 20100913
  8. HARPAGOPHYTUM POWDER [Suspect]
     Route: 048
     Dates: start: 20100913
  9. GENTIANA LUTEA [Suspect]
     Route: 048
     Dates: start: 20100913
  10. ROPINIROLE HYDROCHLORIDE [Concomitant]
     Indication: PARKINSON'S DISEASE
     Dosage: -5-2010
     Route: 048
  11. MAGNESIUM PIDOLATE [Concomitant]
     Dosage: 13-9-2010
     Route: 048
  12. ARNICA 9 CH [Concomitant]
     Dosage: 13-9-2010
     Route: 048
  13. HUSTOX 9CH [Concomitant]
     Dosage: 13-9-2010
     Route: 048
  14. MELISSA OFFICINALIS [Concomitant]
     Dosage: 13-9-2010
     Route: 048

REACTIONS (2)
  - DRUG RASH WITH EOSINOPHILIA AND SYSTEMIC SYMPTOMS [None]
  - VASCULITIS [None]
